FAERS Safety Report 11837661 (Version 1)
Quarter: 2015Q4

REPORT INFORMATION
  Report Type: Spontaneous
  Country: US (occurrence: US)
  Receive Date: 20151215
  Receipt Date: 20151215
  Transmission Date: 20160305
  Serious: Yes (Death, Hospitalization)
  Sender: FDA-Public Use
  Company Number: US-FRI-1000081511

PATIENT
  Age: 86 Year
  Sex: Male

DRUGS (3)
  1. NAMENDA XR [Suspect]
     Active Substance: MEMANTINE HYDROCHLORIDE
     Indication: DEMENTIA ALZHEIMER^S TYPE
     Dosage: 28MG
     Route: 048
     Dates: end: 201511
  2. UNSPECIFIED HIGH BLOOD PRESSURE MEDICATIONS [Concomitant]
     Active Substance: UNSPECIFIED INGREDIENT
  3. UNSPECIFIED CHOLESTEROL MEDICATION [Concomitant]

REACTIONS (4)
  - Fall [Recovered/Resolved]
  - Shoulder operation [Recovered/Resolved]
  - Cardiac failure [Fatal]
  - Dyspnoea [Fatal]

NARRATIVE: CASE EVENT DATE: 201511
